FAERS Safety Report 16254126 (Version 1)
Quarter: 2019Q2

REPORT INFORMATION
  Report Type: Report from Study
  Country: AE (occurrence: AE)
  Receive Date: 20190430
  Receipt Date: 20190430
  Transmission Date: 20190711
  Serious: Yes (Other)
  Sender: FDA-Public Use
  Company Number: PHHY2019AE097879

PATIENT
  Age: 60 Year
  Sex: Female

DRUGS (1)
  1. ENTRESTO [Suspect]
     Active Substance: SACUBITRIL\VALSARTAN
     Indication: CARDIAC FAILURE
     Dosage: 50 MG, BID
     Route: 048
     Dates: start: 2018

REACTIONS (2)
  - Calculus bladder [Unknown]
  - Bladder pain [Not Recovered/Not Resolved]

NARRATIVE: CASE EVENT DATE: 201903
